FAERS Safety Report 14694436 (Version 1)
Quarter: 2018Q1

REPORT INFORMATION
  Report Type: Spontaneous
  Country: SE (occurrence: SE)
  Receive Date: 20180329
  Receipt Date: 20180329
  Transmission Date: 20180509
  Serious: Yes (Other)
  Sender: FDA-Public Use
  Company Number: SE-PFIZER INC-2018019742

PATIENT
  Age: 23 Year
  Sex: Male

DRUGS (5)
  1. DALACIN [Suspect]
     Active Substance: CLINDAMYCIN
     Indication: ACNE
  2. METOPROLOL TARTRATE. [Concomitant]
     Active Substance: METOPROLOL TARTRATE
     Dosage: UNK
  3. SILDENAFIL. [Concomitant]
     Active Substance: SILDENAFIL
     Dosage: UNK
  4. TROMBYL [Concomitant]
     Active Substance: ASPIRIN
     Dosage: UNK
  5. DUORESP [Concomitant]
     Active Substance: BUDESONIDE\FORMOTEROL
     Dosage: UNK

REACTIONS (2)
  - Drug effect incomplete [Recovered/Resolved]
  - Secondary syphilis [Recovered/Resolved]
